FAERS Safety Report 11893758 (Version 1)
Quarter: 2016Q1

REPORT INFORMATION
  Report Type: Report from Study
  Country: US (occurrence: US)
  Receive Date: 20160106
  Receipt Date: 20160106
  Transmission Date: 20160526
  Serious: Yes (Hospitalization)
  Sender: FDA-Public Use
  Company Number: US-EXELIXIS-XL18415005898

PATIENT
  Age: 12 Year
  Sex: Female

DRUGS (1)
  1. XL184 [Suspect]
     Active Substance: CABOZANTINIB
     Indication: EPENDYMOMA MALIGNANT
     Dosage: 40 MG, QD
     Route: 048
     Dates: start: 20140619, end: 20150824

REACTIONS (2)
  - Constipation [Unknown]
  - Skin infection [Unknown]

NARRATIVE: CASE EVENT DATE: 20150904
